FAERS Safety Report 10149048 (Version 2)
Quarter: 2014Q2

REPORT INFORMATION
  Report Type: Spontaneous
  Country: US (occurrence: US)
  Receive Date: 20140502
  Receipt Date: 20140502
  Transmission Date: 20141212
  Serious: Yes (Other)
  Sender: FDA-Public Use
  Company Number: US-AMGEN-USASP2014027788

PATIENT
  Age: 62 Year
  Sex: Male
  Weight: 85.26 kg

DRUGS (1)
  1. NPLATE [Suspect]
     Indication: IMMUNE THROMBOCYTOPENIC PURPURA
     Dosage: 85 MUG, QWK
     Route: 058
     Dates: start: 20140328

REACTIONS (4)
  - Atrial fibrillation [Unknown]
  - Mitral valve disease [Unknown]
  - Neutropenia [Recovered/Resolved]
  - Blood count abnormal [Unknown]
